FAERS Safety Report 17205942 (Version 2)
Quarter: 2019Q4

REPORT INFORMATION
  Report Type: Spontaneous
  Country: JP (occurrence: JP)
  Receive Date: 20191227
  Receipt Date: 20191231
  Transmission Date: 20200122
  Serious: Yes (Hospitalization, Other)
  Sender: FDA-Public Use
  Company Number: JP-009507513-1912JPN003583J

PATIENT
  Age: 71 Year
  Sex: Male

DRUGS (1)
  1. KEYTRUDA [Suspect]
     Active Substance: PEMBROLIZUMAB
     Indication: TRANSITIONAL CELL CARCINOMA
     Dosage: 200 MILLIGRAM, Q3W
     Route: 041
     Dates: start: 20180723, end: 20191031

REACTIONS (4)
  - Hepatic enzyme increased [Recovered/Resolved]
  - Type 1 diabetes mellitus [Unknown]
  - Hyperglycaemia [Recovering/Resolving]
  - Cholangitis sclerosing [Unknown]

NARRATIVE: CASE EVENT DATE: 201912
